FAERS Safety Report 8304532-5 (Version None)
Quarter: 2012Q2

REPORT INFORMATION
  Report Type: 
  Country: None (occurrence: None)
  Receive Date: 20120423
  Receipt Date: 20120413
  Transmission Date: 20120825
  Serious: Yes (Death)
  Sender: FDA-Public Use
  Company Number: US-VIIV HEALTHCARE LIMITED-A0958079A

PATIENT
  Age: 44 Year
  Sex: Male
  Weight: 74.1 kg

DRUGS (5)
  1. BACTRIM [Concomitant]
     Indication: INFECTION
     Dosage: 1TAB PER DAY
  2. SELZENTRY [Suspect]
     Indication: PRODUCT USED FOR UNKNOWN INDICATION
     Dosage: 300MG TWICE PER DAY
     Route: 048
  3. ENSURE [Concomitant]
     Dosage: 1CANS FOUR TIMES PER DAY
     Route: 048
  4. EPZICOM [Suspect]
     Indication: PRODUCT USED FOR UNKNOWN INDICATION
     Dosage: 1TAB PER DAY
     Route: 048
  5. NYSTATIN [Concomitant]
     Indication: FUNGAL INFECTION
     Dosage: 5ML FOUR TIMES PER DAY

REACTIONS (16)
  - NAUSEA [None]
  - VOMITING [None]
  - TENDERNESS [None]
  - SKIN LESION [None]
  - ANXIETY [None]
  - LYMPHADENOPATHY [None]
  - DRUG INTOLERANCE [None]
  - PYREXIA [None]
  - FATIGUE [None]
  - ABDOMINAL PAIN [None]
  - MENINGITIS [None]
  - CHEST PAIN [None]
  - WEIGHT DECREASED [None]
  - VISION BLURRED [None]
  - DIARRHOEA [None]
  - LOCAL SWELLING [None]
